FAERS Safety Report 12615708 (Version 1)
Quarter: 2016Q3

REPORT INFORMATION
  Report Type: Spontaneous
  Country: US (occurrence: US)
  Receive Date: 20160802
  Receipt Date: 20160802
  Transmission Date: 20161109
  Serious: No
  Sender: FDA-Public Use
  Company Number: US-IMPAX LABORATORIES, INC-2016-IPXL-00681

PATIENT
  Sex: Male
  Weight: 55 kg

DRUGS (2)
  1. RYTARY [Suspect]
     Active Substance: CARBIDOPA\LEVODOPA
     Indication: PARKINSON^S DISEASE
     Dosage: 3 CAPSULES IN MORNING, 4 CAPSULES IN AFTERNOON AND 3 CAPSULES IN NIGHT
     Route: 048
     Dates: start: 20160120
  2. PRAMIPEXOLE. [Concomitant]
     Active Substance: PRAMIPEXOLE
     Indication: PARKINSON^S DISEASE
     Dosage: 0.25 MG, TID
     Route: 048

REACTIONS (3)
  - Drug effect decreased [Recovered/Resolved]
  - Drug ineffective [Recovered/Resolved]
  - Incorrect product storage [Unknown]

NARRATIVE: CASE EVENT DATE: 201606
